FAERS Safety Report 14740121 (Version 1)
Quarter: 2018Q2

REPORT INFORMATION
  Report Type: Spontaneous
  Country: US (occurrence: US)
  Receive Date: 20180410
  Receipt Date: 20180410
  Transmission Date: 20180711
  Serious: No
  Sender: FDA-Public Use
  Company Number: US-AJANTA PHARMA USA INC.-2045443

PATIENT
  Age: 42 Year
  Sex: Male
  Weight: 103.18 kg

DRUGS (3)
  1. FLUOXETINE [Concomitant]
     Active Substance: FLUOXETINE HYDROCHLORIDE
  2. ARIPIPRAZOLE (ANDA 206174) [Suspect]
     Active Substance: ARIPIPRAZOLE
     Indication: SCHIZOPHRENIA
     Route: 048
  3. CARBATROL [Concomitant]
     Active Substance: CARBAMAZEPINE

REACTIONS (5)
  - Vision blurred [Recovered/Resolved]
  - Depression [Not Recovered/Not Resolved]
  - Thinking abnormal [Unknown]
  - Oculogyric crisis [Recovered/Resolved]
  - Mood swings [Not Recovered/Not Resolved]

NARRATIVE: CASE EVENT DATE: 2015
